FAERS Safety Report 17529746 (Version 1)
Quarter: 2020Q1

REPORT INFORMATION
  Report Type: Spontaneous
  Country: FR (occurrence: FR)
  Receive Date: 20200311
  Receipt Date: 20200311
  Transmission Date: 20200409
  Serious: Yes (Hospitalization)
  Sender: FDA-Public Use
  Company Number: FR-009507513-2003FRA001086

PATIENT
  Age: 35 Year
  Sex: Female

DRUGS (6)
  1. TUSSIDANE [Suspect]
     Active Substance: DEXTROMETHORPHAN HYDROBROMIDE
     Indication: BRONCHITIS
     Dosage: UNK
     Route: 048
     Dates: start: 20190419, end: 20190422
  2. AMOXICILLIN. [Suspect]
     Active Substance: AMOXICILLIN
     Indication: PNEUMONIA
     Dosage: UNK
     Route: 048
     Dates: start: 20190422, end: 20190423
  3. MICROVAL [Concomitant]
     Active Substance: LEVONORGESTREL
     Dosage: UNK
  4. LEVOTHYROX [Concomitant]
     Active Substance: LEVOTHYROXINE
     Dosage: UNK
  5. CELESTENE (BETAMETHASONE) [Suspect]
     Active Substance: BETAMETHASONE
     Indication: BRONCHITIS
     Dosage: UNK
     Route: 048
     Dates: start: 20190422, end: 20190422
  6. CODOLIPRANE [Suspect]
     Active Substance: ACETAMINOPHEN\CODEINE PHOSPHATE
     Indication: BRONCHITIS
     Dosage: UNK
     Route: 048
     Dates: start: 20190422, end: 20190422

REACTIONS (2)
  - Hyperlipasaemia [Recovered/Resolved]
  - Abdominal pain [Recovered/Resolved]

NARRATIVE: CASE EVENT DATE: 20190422
